FAERS Safety Report 13268677 (Version 1)
Quarter: 2017Q1

REPORT INFORMATION
  Report Type: Spontaneous
  Country: US (occurrence: US)
  Receive Date: 20170224
  Receipt Date: 20170224
  Transmission Date: 20170428
  Serious: No
  Sender: FDA-Public Use
  Company Number: US-RISING PHARMACEUTICALS, INC.-2016RIS00068

PATIENT
  Sex: Female
  Weight: 76.64 kg

DRUGS (15)
  1. NIACIN. [Concomitant]
     Active Substance: NIACIN
     Dosage: 250 MG, UNK
  2. MAGNESIUM [Concomitant]
     Active Substance: MAGNESIUM
     Dosage: 250 MG, UNK
  3. FISH OIL [Concomitant]
     Active Substance: FISH OIL
     Dosage: 2400 MG, UNK
  4. ACACIA. [Concomitant]
     Active Substance: ACACIA
     Dosage: 1000 MG, UNK
  5. MELATONIN [Concomitant]
     Active Substance: MELATONIN
     Dosage: 5 MG, UNK
  6. GLUCOSAMINE/CHONDROITIN [Concomitant]
     Dosage: UNK
  7. DICLOFENAC [Suspect]
     Active Substance: DICLOFENAC
     Indication: CORNEAL DISORDER
     Dosage: 1 GTT, 4X/DAY
     Route: 047
     Dates: start: 2016, end: 2016
  8. RALOXIFENE. [Concomitant]
     Active Substance: RALOXIFENE
     Dosage: 60 MG, UNK
  9. LOSARTAN POTASSIUM. [Concomitant]
     Active Substance: LOSARTAN POTASSIUM
     Dosage: 50 UNK, UNK
  10. CALCIUM CITRATE [Concomitant]
     Active Substance: CALCIUM CITRATE
     Dosage: 1000 MG, UNK
  11. FIBER THERAPY CAPSULES [Concomitant]
     Dosage: 2 UNK, UNK
  12. FOLIC ACID. [Concomitant]
     Active Substance: FOLIC ACID
     Dosage: 800 MG, UNK
  13. VITAMIN D [Concomitant]
     Active Substance: CHOLECALCIFEROL
     Dosage: 2000 MG, UNK
  14. BIOTIN [Concomitant]
     Active Substance: BIOTIN
     Dosage: 2500 MG, UNK
  15. CHROMIUM PICOLINATE [Concomitant]
     Active Substance: CHROMIUM PICOLINATE
     Dosage: 400 MG, UNK

REACTIONS (1)
  - Ocular hyperaemia [Recovered/Resolved]
